FAERS Safety Report 10256393 (Version 1)
Quarter: 2014Q2

REPORT INFORMATION
  Report Type: Spontaneous
  Country: US (occurrence: US)
  Receive Date: 20140624
  Receipt Date: 20140624
  Transmission Date: 20141212
  Serious: No
  Sender: FDA-Public Use
  Company Number: US-ZOGENIX, INC.-2012ZX000148

PATIENT
  Sex: Female
  Weight: 79.45 kg

DRUGS (12)
  1. SUMAVEL DOSEPRO [Suspect]
     Indication: MIGRAINE
  2. CLARITIN [Concomitant]
     Indication: PRODUCT USED FOR UNKNOWN INDICATION
     Route: 048
  3. CYMBALTA [Concomitant]
     Indication: DEPRESSION
     Route: 048
  4. MORPHINE [Concomitant]
     Indication: PAIN
     Route: 048
  5. NEXIUM [Concomitant]
     Indication: GASTROOESOPHAGEAL REFLUX DISEASE
     Route: 048
  6. NOVO-DOMPERIDONE [Concomitant]
     Indication: GASTROOESOPHAGEAL REFLUX DISEASE
  7. ESTRADIOL [Concomitant]
     Indication: HORMONE REPLACEMENT THERAPY
     Route: 048
  8. PROMETHAZINE [Concomitant]
     Indication: NAUSEA
  9. CYCLOBENZAPRINE [Concomitant]
     Indication: MUSCLE TIGHTNESS
     Route: 048
  10. HYDROCODONE W/ACETAMINOPHEN [Concomitant]
     Indication: PAIN
     Route: 048
  11. TRAZODONE [Concomitant]
     Indication: SLEEP DISORDER
     Route: 048
  12. XANAX [Concomitant]
     Indication: ANXIETY
     Route: 048

REACTIONS (5)
  - Injection site haemorrhage [Recovered/Resolved]
  - Injection site scab [Recovered/Resolved]
  - Injection site pain [Recovered/Resolved]
  - Device malfunction [Recovered/Resolved]
  - Accidental exposure to product [Recovered/Resolved]
